FAERS Safety Report 11445545 (Version 1)
Quarter: 2015Q3

REPORT INFORMATION
  Report Type: Spontaneous
  Country: US (occurrence: US)
  Receive Date: 20150902
  Receipt Date: 20150902
  Transmission Date: 20151125
  Serious: No
  Sender: FDA-Public Use
  Company Number: US-LUNDBECK-DKLU2002507

PATIENT
  Sex: Male

DRUGS (4)
  1. NORTHERA [Suspect]
     Active Substance: DROXIDOPA
     Route: 065
  2. NORTHERA [Suspect]
     Active Substance: DROXIDOPA
     Route: 065
  3. NORTHERA [Suspect]
     Active Substance: DROXIDOPA
     Indication: PRODUCT USED FOR UNKNOWN INDICATION
     Route: 065
  4. NORTHERA [Suspect]
     Active Substance: DROXIDOPA
     Route: 065

REACTIONS (11)
  - Flushing [Unknown]
  - Myalgia [Unknown]
  - Insomnia [Unknown]
  - Asthenia [Unknown]
  - Back pain [Unknown]
  - Dry mouth [Not Recovered/Not Resolved]
  - Feeling hot [Unknown]
  - Musculoskeletal stiffness [Unknown]
  - Erythema [Unknown]
  - Hot flush [Unknown]
  - Discomfort [Unknown]
